FAERS Safety Report 8553109 (Version 5)
Quarter: 2012Q4

REPORT INFORMATION
  Report Type: 
  Country: US (occurrence: US)
  Receive Date: 20120509
  Receipt Date: 20121122
  Transmission Date: 20130627
  Serious: No
  Sender: FDA-Public Use
  Company Number: US-PFIZER INC-2012109763

PATIENT
  Age: 67 Year
  Sex: Female

DRUGS (3)
  1. XALKORI [Suspect]
     Indication: LUNG CANCER
     Dosage: 500 mg, UNK
     Route: 048
     Dates: start: 201202
  2. XALKORI [Suspect]
     Dosage: 250 mg, 2x/day
     Route: 048
     Dates: start: 20120424
  3. XALKORI [Suspect]
     Dosage: 250 mg, 2x/day
     Route: 048
     Dates: start: 20120427

REACTIONS (7)
  - Constipation [Unknown]
  - Dyspepsia [Unknown]
  - Nasopharyngitis [Unknown]
  - Nausea [Recovered/Resolved]
  - Vomiting [Recovered/Resolved]
  - Dizziness [Recovered/Resolved]
  - Stomatitis [Recovered/Resolved]
